FAERS Safety Report 11725680 (Version 3)
Quarter: 2016Q3

REPORT INFORMATION
  Report Type: Spontaneous
  Country: US (occurrence: US)
  Receive Date: 20151111
  Receipt Date: 20160826
  Transmission Date: 20161109
  Serious: Yes (Other)
  Sender: FDA-Public Use
  Company Number: US-UCBSA-2015027137

PATIENT
  Age: 5 Year
  Sex: Male
  Weight: 17 kg

DRUGS (3)
  1. VIMPAT [Suspect]
     Active Substance: LACOSAMIDE
     Indication: SEIZURE
     Dosage: 2 ML, 2X/DAY (BID) (STRENGTH 10 MG/ML) (NDC NO: 0131-5410-71)
     Route: 048
     Dates: start: 201106, end: 2016
  2. VITAMIN D3 [Interacting]
     Active Substance: CHOLECALCIFEROL
     Indication: NUTRITIONAL SUPPLEMENTATION
     Dosage: 1 DF, ONE TIME DOSE; 1 DF, ONCE DAILY (QD); 1 SOFTGEL, ONCE ORALLY (STRENGHT: 2000 IU SOFTGELS)
     Route: 048
     Dates: start: 20150727, end: 20150727
  3. VIMPAT [Suspect]
     Active Substance: LACOSAMIDE
     Indication: SEIZURE
     Dosage: 30 MG, 3X/DAY (TID)
     Route: 048
     Dates: start: 20160425

REACTIONS (7)
  - Drug interaction [Recovered/Resolved]
  - Seizure [Recovered/Resolved]
  - Complex partial seizures [Recovered/Resolved]
  - Drooling [Recovered/Resolved]
  - Off label use [Unknown]
  - Product quality issue [Unknown]
  - Vitamin D decreased [Not Recovered/Not Resolved]

NARRATIVE: CASE EVENT DATE: 201106
